FAERS Safety Report 7077325-7 (Version None)
Quarter: 2010Q4

REPORT INFORMATION
  Report Type: 
  Country: None (occurrence: None)
  Receive Date: 20101022
  Receipt Date: 20101019
  Transmission Date: 20110411
  Serious: Yes (Life-Threatening, Hospitalization)
  Sender: FDA-Public Use
  Company Number: 2010SP043123

PATIENT
  Age: 59 Year
  Sex: Female
  Weight: 77.1115 kg

DRUGS (4)
  1. INTEGRILIN [Suspect]
     Indication: CARDIAC DISORDER
     Dates: start: 20100802, end: 20100802
  2. PLAVIX [Concomitant]
  3. HEPARIN [Concomitant]
  4. ASPIRIN [Concomitant]

REACTIONS (4)
  - CARDIAC TAMPONADE [None]
  - GASTRIC HAEMORRHAGE [None]
  - HAEMODYNAMIC INSTABILITY [None]
  - RENAL HAEMORRHAGE [None]
